FAERS Safety Report 8278139 (Version 2)
Quarter: 2013Q1

REPORT INFORMATION
  Report Type: Spontaneous
  Country: BR (occurrence: BR)
  Receive Date: 20111207
  Receipt Date: 20130128
  Transmission Date: 20140127
  Serious: Yes (Other)
  Sender: FDA-Public Use
  Company Number: PHHY2011BR104535

PATIENT
  Sex: Female

DRUGS (1)
  1. DIOVAN HCT [Suspect]
     Dosage: 1 DF (160/12.5MG), UNK

REACTIONS (7)
  - Hypothyroidism [Recovered/Resolved]
  - Postpartum hypopituitarism [Recovered/Resolved]
  - Hypopituitarism [Recovered/Resolved]
  - Blood pressure increased [Recovered/Resolved]
  - Blood potassium decreased [Recovered/Resolved]
  - Pollakiuria [Recovered/Resolved]
  - Exposure during pregnancy [Recovered/Resolved]
